FAERS Safety Report 8531509-7 (Version None)
Quarter: 2012Q3

REPORT INFORMATION
  Report Type: 
  Country: None (occurrence: None)
  Receive Date: 20120723
  Receipt Date: 20120713
  Transmission Date: 20120928
  Serious: Yes (Hospitalization)
  Sender: FDA-Public Use
  Company Number: US-ASTRAZENECA-2012SE48882

PATIENT
  Age: 885 Month
  Sex: Female
  Weight: 82 kg

DRUGS (4)
  1. OXYCONTIN [Suspect]
     Indication: NEUROPATHY PERIPHERAL
     Route: 065
  2. FASLODEX [Suspect]
     Indication: BREAST CANCER METASTATIC
     Route: 030
     Dates: start: 20110328
  3. OXYCONTIN [Suspect]
     Route: 065
  4. ARIMIDEX [Suspect]
     Indication: BREAST CANCER METASTATIC
     Route: 048
     Dates: start: 20110328

REACTIONS (1)
  - SYNCOPE [None]
